FAERS Safety Report 7270098-4 (Version None)
Quarter: 2011Q1

REPORT INFORMATION
  Report Type: 
  Country: None (occurrence: None)
  Receive Date: 20110202
  Receipt Date: 20101202
  Transmission Date: 20110831
  Serious: No
  Sender: FDA-Public Use
  Company Number: US-BAYER-2010-003477

PATIENT
  Sex: Male
  Weight: 13 kg

DRUGS (1)
  1. ALEVE (CAPLET) [Suspect]
     Indication: KNEE OPERATION
     Dosage: UNK
     Route: 048
     Dates: start: 20100101

REACTIONS (1)
  - NO ADVERSE EVENT [None]
